FAERS Safety Report 7628721-8 (Version None)
Quarter: 2011Q3

REPORT INFORMATION
  Report Type: 
  Country: None (occurrence: None)
  Receive Date: 20110722
  Receipt Date: 20110715
  Transmission Date: 20111222
  Serious: Yes (Other)
  Sender: FDA-Public Use
  Company Number: GB-B.I. PHARMACEUTICALS,INC./RIDGEFIELD-2011-UK-00396UK

PATIENT
  Sex: Female
  Weight: 68 kg

DRUGS (7)
  1. SPIRIVA [Suspect]
     Indication: CHRONIC OBSTRUCTIVE PULMONARY DISEASE
     Dosage: 18 MCG
     Route: 055
     Dates: start: 20071008, end: 20110513
  2. SYMBICORT [Concomitant]
     Dosage: 2 ANZ
     Route: 055
  3. ATROVENT [Concomitant]
     Dosage: QDS
     Route: 055
  4. ALBUTEROL [Concomitant]
     Indication: ASTHMA
     Dosage: PRN
     Route: 055
     Dates: start: 20070201
  5. MUCODYNE [Concomitant]
     Dosage: 4 ANZ
     Route: 048
  6. SINGULAIR [Concomitant]
     Dosage: AT NIGHT
     Route: 048
  7. LORATADINE [Concomitant]
     Dosage: 1 ANZ
     Route: 048

REACTIONS (7)
  - PALPITATIONS [None]
  - INTRAOCULAR PRESSURE INCREASED [None]
  - HEART RATE IRREGULAR [None]
  - HEART RATE INCREASED [None]
  - ARRHYTHMIA [None]
  - EXTRASYSTOLES [None]
  - DYSPNOEA [None]
